FAERS Safety Report 19815743 (Version 3)
Quarter: 2022Q2

REPORT INFORMATION
  Report Type: Spontaneous
  Country: GB (occurrence: GB)
  Receive Date: 20210910
  Receipt Date: 20220406
  Transmission Date: 20220721
  Serious: Yes (Hospitalization, Other)
  Sender: FDA-Public Use
  Company Number: GB-TEVA-2021-GB-1902320

PATIENT
  Age: 35 Year
  Sex: Male
  Weight: 69.9 kg

DRUGS (6)
  1. CIPROFLOXACIN [Suspect]
     Active Substance: CIPROFLOXACIN
     Indication: Product used for unknown indication
     Dosage: UNK, DOSAGE MORE THAN DOUBLED
     Route: 065
  2. CIPROFLOXACIN [Suspect]
     Active Substance: CIPROFLOXACIN
     Dosage: 500 MILLIGRAM, BID
     Route: 048
     Dates: start: 20210326, end: 20210401
  3. OFLOXACIN [Suspect]
     Active Substance: OFLOXACIN
     Indication: Prostatitis
     Dosage: UNK
     Route: 065
  4. OFLOXACIN [Suspect]
     Active Substance: OFLOXACIN
     Dosage: 400 MILLIGRAM, QD
     Route: 048
     Dates: start: 20210308
  5. OFLOXACIN [Suspect]
     Active Substance: OFLOXACIN
     Dosage: 200 MILLIGRAM
     Route: 048
     Dates: start: 20210309
  6. ZOPICLONE [Concomitant]
     Active Substance: ZOPICLONE
     Indication: Insomnia
     Dosage: 7.5 MILLIGRAM DAILY; TAKEN AS NEEDED, 1/2-1 TABLET

REACTIONS (25)
  - Illness [Not Recovered/Not Resolved]
  - Malaise [Not Recovered/Not Resolved]
  - Adverse event [Unknown]
  - Insomnia [Unknown]
  - Tinnitus [Unknown]
  - Prostatitis [Not Recovered/Not Resolved]
  - Adverse drug reaction [Unknown]
  - Impaired work ability [Unknown]
  - Loss of personal independence in daily activities [Unknown]
  - Dyspnoea [Not Recovered/Not Resolved]
  - Anxiety [Unknown]
  - Groin pain [Not Recovered/Not Resolved]
  - Prostatic pain [Not Recovered/Not Resolved]
  - Pain [Unknown]
  - Abdominal pain [Not Recovered/Not Resolved]
  - Drug hypersensitivity [Unknown]
  - Nephrolithiasis [Unknown]
  - Neuropathy peripheral [Unknown]
  - Incorrect dose administered [Unknown]
  - Hypoaesthesia [Unknown]
  - Paraesthesia [Unknown]
  - Hypotonia [Unknown]
  - Condition aggravated [Unknown]
  - Weight decreased [Unknown]
  - Product prescribing error [Unknown]
